FAERS Safety Report 25918954 (Version 1)
Quarter: 2025Q4

REPORT INFORMATION
  Report Type: Spontaneous
  Country: US (occurrence: None)
  Receive Date: 20251010
  Receipt Date: 20251010
  Transmission Date: 20260118
  Serious: Yes (Death)
  Sender: FDA-CTU
  Company Number: None

PATIENT
  Age: 57 Year
  Sex: Female

DRUGS (12)
  1. OPSUMIT [Suspect]
     Active Substance: MACITENTAN
     Indication: Pulmonary arterial hypertension
     Dosage: FREQUENCY : DAILY;?
     Route: 048
     Dates: start: 20250611, end: 20250723
  2. FUROSEMIDE [Concomitant]
     Active Substance: FUROSEMIDE
  3. MIDODRINE [Concomitant]
     Active Substance: MIDODRINE
  4. DABIGATRAN [Concomitant]
     Active Substance: DABIGATRAN
  5. OMEPRAZOLE [Concomitant]
     Active Substance: OMEPRAZOLE
  6. GABAPENTIN [Concomitant]
     Active Substance: GABAPENTIN
  7. POTASSIUM CHLORIDE [Concomitant]
     Active Substance: POTASSIUM CHLORIDE
  8. JARDIANCE [Concomitant]
     Active Substance: EMPAGLIFLOZIN
  9. SIMVASTATIN [Concomitant]
     Active Substance: SIMVASTATIN
  10. DUONEB [Concomitant]
     Active Substance: ALBUTEROL SULFATE\IPRATROPIUM BROMIDE
  11. oxygen intranasal [Concomitant]
  12. SOTATERCEPT [Suspect]
     Active Substance: SOTATERCEPT

REACTIONS (3)
  - Shock [None]
  - Pneumonia aspiration [None]
  - Acute kidney injury [None]

NARRATIVE: CASE EVENT DATE: 20250713
